FAERS Safety Report 6368126-3 (Version None)
Quarter: 2009Q3

REPORT INFORMATION
  Report Type: 
  Country: None (occurrence: None)
  Receive Date: 20090922
  Receipt Date: 20090914
  Transmission Date: 20100115
  Serious: Yes (Life-Threatening, Disabling, Other)
  Sender: FDA-Public Use
  Company Number: PHEH2009US08824

PATIENT
  Sex: Male
  Weight: 141 kg

DRUGS (18)
  1. RECLAST [Suspect]
     Indication: OSTEOPOROSIS
     Dosage: 5 MG, ONCE/SINGLE
     Route: 042
     Dates: start: 20080814, end: 20080814
  2. RECLAST [Suspect]
     Indication: OSTEOARTHRITIS
  3. TESTIM [Concomitant]
     Indication: HYPOGONADISM
     Dosage: 5 GM DAILY
  4. SIMVASTATIN [Concomitant]
     Indication: BLOOD CHOLESTEROL INCREASED
     Dosage: UNK
     Dates: start: 20080101
  5. ZETIA [Concomitant]
     Indication: BLOOD CHOLESTEROL INCREASED
     Dosage: UNK
     Dates: start: 20070101
  6. LISINOPRIL [Concomitant]
     Dosage: 20 MG/DAY
  7. METOPROLOL TARTRATE [Concomitant]
     Dosage: 50 MG/DAY
  8. REQUIP [Concomitant]
     Indication: MUSCLE SPASTICITY
     Dosage: UNK
     Dates: start: 20070101
  9. CYMBALTA [Concomitant]
     Indication: DEPRESSION
     Dosage: UNK
     Dates: start: 20080401
  10. LOVAZA [Concomitant]
  11. VITAMIN D [Concomitant]
  12. OYSCO [Concomitant]
  13. QUININE [Concomitant]
  14. BENZONATATE [Concomitant]
     Indication: COUGH
  15. MECLIZINE [Concomitant]
     Indication: DIZZINESS
     Dosage: UNK
     Dates: start: 20070101
  16. KLONOPIN [Concomitant]
     Indication: FALL
  17. TORASEMIDE [Concomitant]
  18. TESTOSTERONE [Concomitant]

REACTIONS (21)
  - ARTHRALGIA [None]
  - BONE PAIN [None]
  - CONDITION AGGRAVATED [None]
  - ENDODONTIC PROCEDURE [None]
  - FEELING ABNORMAL [None]
  - GINGIVAL BLEEDING [None]
  - GINGIVAL ULCERATION [None]
  - INSOMNIA [None]
  - JAW DISORDER [None]
  - MASTICATION DISORDER [None]
  - MYALGIA [None]
  - NEURALGIA [None]
  - ORAL INFECTION [None]
  - PAIN IN JAW [None]
  - PRURITUS [None]
  - RASH GENERALISED [None]
  - SENSITIVITY OF TEETH [None]
  - SWELLING [None]
  - SWOLLEN TONGUE [None]
  - TONSILLAR HYPERTROPHY [None]
  - TOOTH INFECTION [None]
